FAERS Safety Report 6028030-7 (Version None)
Quarter: 2008Q4

REPORT INFORMATION
  Report Type: 
  Country: None (occurrence: None)
  Receive Date: 20081231
  Receipt Date: 20081219
  Transmission Date: 20090506
  Serious: Yes (Hospitalization)
  Sender: FDA-Public Use
  Company Number: GXKR2008DE12164

PATIENT
  Age: 32 Year
  Sex: Male
  Weight: 103 kg

DRUGS (8)
  1. CLARITHROMYCIN [Suspect]
     Indication: BRONCHITIS
     Dosage: 500 MG, ONCE/SINGLE, ORAL; 500 MG, ONCE/SINGLE
     Route: 048
  2. QUETIAPINE FUMARATE [Suspect]
     Dosage: 50 MG; 300 MG, IN MORNING; 400 MG, IN EVENING
  3. SULTAMICILLIN (SULTAMICILLIN) [Concomitant]
  4. VALPROIC ACID (VALPROIC ACID) [Concomitant]
  5. OMEPRAZOLE [Concomitant]
  6. METFORMIN HCL [Concomitant]
  7. GLYBURIDE [Concomitant]
  8. EZETIMIBE [Concomitant]

REACTIONS (8)
  - ALTERED STATE OF CONSCIOUSNESS [None]
  - DEPRESSED LEVEL OF CONSCIOUSNESS [None]
  - DRUG INTERACTION [None]
  - DRUG LEVEL INCREASED [None]
  - LOWER RESPIRATORY TRACT INFECTION [None]
  - PNEUMONIA [None]
  - RESPIRATORY DEPRESSION [None]
  - SOMNOLENCE [None]
